FAERS Safety Report 12732503 (Version 1)
Quarter: 2016Q3

REPORT INFORMATION
  Report Type: Spontaneous
  Country: US (occurrence: US)
  Receive Date: 20160909
  Receipt Date: 20160909
  Transmission Date: 20161109
  Serious: Yes (Hospitalization)
  Sender: FDA-Public Use
  Company Number: None

PATIENT
  Age: 76 Year
  Sex: Female
  Weight: 86.55 kg

DRUGS (4)
  1. DILTIAZEM HCL [Concomitant]
     Active Substance: DILTIAZEM HYDROCHLORIDE
  2. FRAGMIN [Suspect]
     Active Substance: DALTEPARIN SODIUM
     Dosage: 150 IU/KG QD SUBCUTANEOUS INJECTION
     Route: 058
     Dates: start: 20160310, end: 20160906
  3. VITAMIN B12-FOLIC ACID [Concomitant]
  4. METOPROLOL SUCCINATE. [Concomitant]
     Active Substance: METOPROLOL SUCCINATE

REACTIONS (3)
  - Gastrointestinal disorder [None]
  - Nodule [None]
  - Oesophageal food impaction [None]

NARRATIVE: CASE EVENT DATE: 20160907
